FAERS Safety Report 9837072 (Version 2)
Quarter: 2014Q1

REPORT INFORMATION
  Report Type: Report from Study
  Country: FR (occurrence: FR)
  Receive Date: 20140123
  Receipt Date: 20140129
  Transmission Date: 20141002
  Serious: Yes (Hospitalization)
  Sender: FDA-Public Use
  Company Number: FR-ROCHE-1333572

PATIENT
  Sex: Male

DRUGS (15)
  1. RITUXIMAB [Suspect]
     Indication: RHEUMATOID ARTHRITIS
     Route: 041
     Dates: start: 20080306
  2. RITUXIMAB [Suspect]
     Route: 042
     Dates: start: 20080320
  3. RITUXIMAB [Suspect]
     Route: 042
     Dates: start: 20080925
  4. RITUXIMAB [Suspect]
     Route: 042
     Dates: start: 20081208
  5. RITUXIMAB [Suspect]
     Route: 042
     Dates: start: 20101030
  6. RITUXIMAB [Suspect]
     Route: 042
     Dates: start: 20101116
  7. PLAVIX [Concomitant]
  8. COVERSYL [Concomitant]
  9. ACEBUTOLOL [Concomitant]
  10. SIMVASTATIN [Concomitant]
  11. CORTANCYL [Concomitant]
     Route: 065
     Dates: start: 20080306
  12. CORTANCYL [Concomitant]
     Route: 065
     Dates: start: 20080320
  13. CORTANCYL [Concomitant]
     Route: 065
     Dates: start: 20080308
  14. CORTANCYL [Concomitant]
     Route: 065
     Dates: start: 20101116
  15. CORTANCYL [Concomitant]
     Route: 065
     Dates: start: 20120413

REACTIONS (7)
  - Gastritis [Recovering/Resolving]
  - Brain neoplasm [Not Recovered/Not Resolved]
  - Bronchitis [Recovered/Resolved]
  - Tendonitis [Unknown]
  - Sinusitis [Recovered/Resolved]
  - Asthenia [Recovered/Resolved]
  - Pruritus [Unknown]
